FAERS Safety Report 16160170 (Version 6)
Quarter: 2019Q3

REPORT INFORMATION
  Report Type: Report from Study
  Country: US (occurrence: US)
  Receive Date: 20190404
  Receipt Date: 20190821
  Transmission Date: 20191004
  Serious: Yes (Hospitalization, Other)
  Sender: FDA-Public Use
  Company Number: US-ACTELION-A-NJ2019-188434

PATIENT
  Age: 52 Year
  Sex: Female
  Weight: 63.49 kg

DRUGS (9)
  1. OPSUMIT [Suspect]
     Active Substance: MACITENTAN
     Indication: PULMONARY ARTERIAL HYPERTENSION
     Dosage: 10 MG, QD
     Route: 048
     Dates: start: 20170413
  2. XARELTO [Concomitant]
     Active Substance: RIVAROXABAN
  3. VELETRI [Suspect]
     Active Substance: EPOPROSTENOL
     Indication: PULMONARY ARTERIAL HYPERTENSION
     Dosage: 38 NG/KG, PER MIN
     Route: 042
  4. TYVASO [Concomitant]
     Active Substance: TREPROSTINIL
  5. VELETRI [Suspect]
     Active Substance: EPOPROSTENOL
     Dosage: 40 NG/KG, PER MIN
     Route: 042
  6. REMODULIN [Concomitant]
     Active Substance: TREPROSTINIL
  7. VELETRI [Suspect]
     Active Substance: EPOPROSTENOL
     Dosage: 49 NG/KG, PER MIN
     Route: 042
  8. VELETRI [Suspect]
     Active Substance: EPOPROSTENOL
     Dosage: 63 UNK
     Route: 042
  9. ADEMPAS [Concomitant]
     Active Substance: RIOCIGUAT

REACTIONS (13)
  - Therapy change [Unknown]
  - Pulmonary hypertension [Unknown]
  - Lung transplant [Unknown]
  - Pulmonary arterial hypertension [Unknown]
  - Pain in jaw [Unknown]
  - Nausea [Unknown]
  - Hospitalisation [Unknown]
  - Gastrointestinal disorder [Unknown]
  - Dyspnoea exertional [Unknown]
  - Condition aggravated [Unknown]
  - Dyspnoea [Unknown]
  - Transplant evaluation [Unknown]
  - Diarrhoea [Unknown]

NARRATIVE: CASE EVENT DATE: 20190704
